FAERS Safety Report 7783157-4 (Version None)
Quarter: 2011Q3

REPORT INFORMATION
  Report Type: 
  Country: None (occurrence: None)
  Receive Date: 20110928
  Receipt Date: 20110921
  Transmission Date: 20111222
  Serious: Yes (Life-Threatening)
  Sender: FDA-Public Use
  Company Number: DE-SANOFI-AVENTIS-2011SA035410

PATIENT
  Age: 67 Year
  Sex: Male

DRUGS (4)
  1. MULTAQ [Suspect]
     Indication: ATRIAL FIBRILLATION
     Route: 048
     Dates: start: 20101201
  2. ULTIVA [Concomitant]
     Indication: SEDATION
     Route: 042
     Dates: start: 20020119, end: 20020119
  3. MARCUMAR [Concomitant]
     Route: 048
  4. PROPOFOL [Concomitant]
     Route: 042
     Dates: start: 20110119, end: 20110119

REACTIONS (3)
  - BLOOD PRESSURE DECREASED [None]
  - CARDIAC ARREST [None]
  - HAEMODYNAMIC INSTABILITY [None]
